FAERS Safety Report 4881768-7 (Version None)
Quarter: 2006Q1

REPORT INFORMATION
  Report Type: 
  Country: None (occurrence: None)
  Receive Date: 20060117
  Receipt Date: 20060111
  Transmission Date: 20060701
  Serious: Yes (Death, Hospitalization, Other)
  Sender: FDA-Public Use
  Company Number: GB-JNJFOC-20050804290

PATIENT
  Sex: Female

DRUGS (7)
  1. REMICADE [Suspect]
     Indication: RHEUMATOID ARTHRITIS
     Route: 042
  2. PREDNISOLONE [Concomitant]
     Route: 065
  3. BRUFEN [Concomitant]
     Route: 065
  4. PANTOPRAZOLE [Concomitant]
     Route: 065
  5. FOSAMAX [Concomitant]
     Route: 065
  6. CALCICHEW [Concomitant]
     Route: 065
  7. METHOTREXATE [Concomitant]
     Route: 065

REACTIONS (1)
  - OVARIAN CANCER [None]
